FAERS Safety Report 8018038-4 (Version None)
Quarter: 2012Q1

REPORT INFORMATION
  Report Type: 
  Country: None (occurrence: None)
  Receive Date: 20120103
  Receipt Date: 20111227
  Transmission Date: 20120608
  Serious: Yes (Life-Threatening, Hospitalization)
  Sender: FDA-Public Use
  Company Number: AT-JNJFOC-20111207409

PATIENT
  Sex: Male
  Weight: 99 kg

DRUGS (10)
  1. ACECOMB [Concomitant]
  2. NORVASC [Concomitant]
  3. PANTOP [Concomitant]
     Dates: start: 20111210
  4. NAPROXEN [Concomitant]
     Indication: PROCEDURAL PAIN
     Dates: start: 20111203, end: 20111210
  5. PANTOP [Concomitant]
     Indication: PROPHYLAXIS
     Dates: start: 20111202, end: 20111210
  6. XARELTO [Suspect]
     Indication: THROMBOSIS PROPHYLAXIS
     Route: 048
     Dates: start: 20111202, end: 20111210
  7. LISINOPRIL [Concomitant]
  8. CARBAMAZEPINE [Concomitant]
  9. MEXALEN [Concomitant]
     Indication: PROCEDURAL PAIN
     Dates: start: 20111203, end: 20111210
  10. XARELTO [Suspect]
     Indication: HIP SURGERY
     Route: 048
     Dates: start: 20111202, end: 20111210

REACTIONS (2)
  - DIVERTICULITIS INTESTINAL HAEMORRHAGIC [None]
  - SHOCK HAEMORRHAGIC [None]
